FAERS Safety Report 8764484 (Version 1)
Quarter: 2012Q4

REPORT INFORMATION
  Report Type: 
  Country: US (occurrence: US)
  Receive Date: 20120831
  Receipt Date: 20120831
  Transmission Date: 20130627
  Serious: No
  Sender: FDA-Public Use
  Company Number: US-009507513-1208USA009040

PATIENT

DRUGS (3)
  1. MIRALAX [Suspect]
     Indication: CONSTIPATION
     Dosage: 17 g, Once
     Route: 048
     Dates: start: 20120807
  2. MIRALAX [Suspect]
     Indication: MEDICAL OBSERVATION
  3. UNSPECIFIED INGREDIENT [Concomitant]
     Indication: NEOPLASM MALIGNANT
     Dosage: UNK, Unknown
     Dates: start: 20120807

REACTIONS (3)
  - Abdominal discomfort [Not Recovered/Not Resolved]
  - Abdominal rigidity [Not Recovered/Not Resolved]
  - Drug ineffective [Unknown]
